FAERS Safety Report 8543400-0 (Version None)
Quarter: 2012Q3

REPORT INFORMATION
  Report Type: 
  Country: None (occurrence: None)
  Receive Date: 20120727
  Receipt Date: 20120716
  Transmission Date: 20120928
  Serious: Yes (Other)
  Sender: FDA-Public Use
  Company Number: US-ENDO PHARMACEUTICALS INC.-OPCR20120805

PATIENT
  Sex: Female

DRUGS (2)
  1. OPANA ER [Concomitant]
     Route: 048
     Dates: end: 20120101
  2. OPANA ER [Suspect]
     Indication: PAIN
     Route: 048
     Dates: start: 20120101, end: 20120508

REACTIONS (6)
  - SUDDEN VISUAL LOSS [None]
  - CHEST PAIN [None]
  - ABDOMINAL DISCOMFORT [None]
  - DRUG INEFFECTIVE [None]
  - PRESYNCOPE [None]
  - PAIN IN EXTREMITY [None]
